FAERS Safety Report 24461364 (Version 1)
Quarter: 2024Q4

REPORT INFORMATION
  Report Type: Report from Study
  Country: PE (occurrence: PE)
  Receive Date: 20241018
  Receipt Date: 20241018
  Transmission Date: 20250115
  Serious: No
  Sender: ROCHE
  Company Number: PE-ROCHE-3575742

PATIENT
  Age: 52 Year
  Sex: Female

DRUGS (1)
  1. MABTHERA [Suspect]
     Active Substance: RITUXIMAB
     Indication: Pemphigus
     Dosage: 2 VIALS OF 500 MG AND AFTER 15 DAYS AGAIN 2 OF 500 MG
     Route: 042
     Dates: start: 20240105

REACTIONS (4)
  - Face injury [Unknown]
  - Skin lesion [Unknown]
  - Injury [Unknown]
  - Face injury [Unknown]
